FAERS Safety Report 25912246 (Version 1)
Quarter: 2025Q4

REPORT INFORMATION
  Report Type: Spontaneous
  Country: EU (occurrence: None)
  Receive Date: 20251013
  Receipt Date: 20251013
  Transmission Date: 20260118
  Serious: Yes (Hospitalization, Other)
  Sender: ORGANON
  Company Number: None

PATIENT
  Age: 32 Year
  Sex: Female

DRUGS (4)
  1. GANIRELIX [Suspect]
     Active Substance: GANIRELIX
     Indication: Assisted reproductive technology
     Dosage: UNK
  2. FOLLITROPIN\LUTROPIN ALFA [Suspect]
     Active Substance: FOLLITROPIN\LUTROPIN ALFA
     Indication: Assisted reproductive technology
     Dosage: UNK
  3. CRINONE [Suspect]
     Active Substance: PROGESTERONE
     Indication: Assisted reproductive technology
     Dosage: UNK
  4. CHORIOGONADOTROPIN ALFA [Suspect]
     Active Substance: CHORIOGONADOTROPIN ALFA
     Indication: Assisted reproductive technology
     Dosage: UNK

REACTIONS (1)
  - Intra-abdominal haemorrhage [Unknown]

NARRATIVE: CASE EVENT DATE: 20251004
